FAERS Safety Report 18058824 (Version 2)
Quarter: 2020Q3

REPORT INFORMATION
  Report Type: Spontaneous
  Country: US (occurrence: US)
  Receive Date: 20200723
  Receipt Date: 20200807
  Transmission Date: 20201103
  Serious: No
  Sender: FDA-Public Use
  Company Number: US-SHIRE-US202023764

PATIENT
  Sex: Female
  Weight: 74.83 kg

DRUGS (5)
  1. CUVITRU [Suspect]
     Active Substance: HUMAN IMMUNOGLOBULIN G
     Dosage: 6 GRAM, 1X/WEEK
     Route: 058
     Dates: start: 202005
  2. CUVITRU [Suspect]
     Active Substance: HUMAN IMMUNOGLOBULIN G
     Indication: IMMUNODEFICIENCY
     Dosage: 8 GRAM, 1X/WEEK
     Route: 065
     Dates: start: 202003
  3. INTERFERON A [Concomitant]
     Active Substance: INTERFERON ALFA-2A
     Indication: HEPATITIS
  4. CUVITRU [Suspect]
     Active Substance: HUMAN IMMUNOGLOBULIN G
     Dosage: 8 GRAM, 1X/WEEK
     Route: 058
     Dates: start: 202006
  5. CUVITRU [Suspect]
     Active Substance: HUMAN IMMUNOGLOBULIN G
     Dosage: 4 GRAM, 1X/WEEK
     Route: 058
     Dates: start: 20200420

REACTIONS (3)
  - Pruritus [Recovered/Resolved]
  - Condition aggravated [Unknown]
  - Infection [Unknown]
